FAERS Safety Report 5392337-7 (Version None)
Quarter: 2007Q3

REPORT INFORMATION
  Report Type: 
  Country: None (occurrence: None)
  Receive Date: 20070720
  Receipt Date: 20070716
  Transmission Date: 20080115
  Serious: Yes (Hospitalization)
  Sender: FDA-Public Use
  Company Number: US-MERCK-0707USA02740

PATIENT
  Age: 43 Year
  Sex: Male

DRUGS (2)
  1. PROPECIA [Suspect]
     Route: 048
     Dates: end: 20070716
  2. PROPECIA [Suspect]
     Route: 048

REACTIONS (1)
  - ACNE [None]
